FAERS Safety Report 9564719 (Version 4)
Quarter: 2013Q4

REPORT INFORMATION
  Report Type: Spontaneous
  Country: US (occurrence: US)
  Receive Date: 20130930
  Receipt Date: 20131010
  Transmission Date: 20140711
  Serious: No
  Sender: FDA-Public Use
  Company Number: US-PFIZER INC-2013271538

PATIENT
  Age: 49 Year
  Sex: Female
  Weight: 68.93 kg

DRUGS (8)
  1. LYRICA [Suspect]
     Indication: FIBROMYALGIA
     Dosage: 200 MG, 2X/DAY
     Dates: start: 2011, end: 2012
  2. LORCET [Concomitant]
     Indication: BACK PAIN
     Dosage: HYDROCODONE BITARTRATE10MG / PARACETAMOL 650MG, AS NEEDED
  3. XANAX [Concomitant]
     Indication: PANIC DISORDER
     Dosage: 1 MG, 4X/DAY
  4. METOPROLOL [Concomitant]
     Indication: HYPERTENSION
     Dosage: 50 MG, DAILY
  5. FLEXERIL [Concomitant]
     Indication: MUSCLE SPASMS
     Dosage: 10 MG, AS NEEDED
  6. PRILOSEC [Concomitant]
     Dosage: UNK
  7. VITAMIN D [Concomitant]
     Dosage: UNK
  8. ALPRAZOLAM [Concomitant]
     Dosage: UNK

REACTIONS (6)
  - Fatigue [Recovered/Resolved]
  - Malaise [Unknown]
  - Gait disturbance [Unknown]
  - Headache [Unknown]
  - Feeling abnormal [Unknown]
  - Therapeutic response unexpected [Unknown]
